FAERS Safety Report 20610432 (Version 1)
Quarter: 2022Q1

REPORT INFORMATION
  Report Type: Spontaneous
  Country: US (occurrence: US)
  Receive Date: 20220318
  Receipt Date: 20220318
  Transmission Date: 20220423
  Serious: Yes (Other)
  Sender: FDA-Public Use
  Company Number: US-drreddys-SPO/USA/22/0147636

PATIENT
  Age: 29 Year
  Sex: Female

DRUGS (1)
  1. ZENATANE [Suspect]
     Active Substance: ISOTRETINOIN
     Indication: Product used for unknown indication
     Dosage: RMA ISSUE DATE: 03 FEBRUARY 2022 03:37:01 PM, 14 JANUARY 2022 11:18:05 AM.

REACTIONS (2)
  - Mood altered [Unknown]
  - Depression [Unknown]
